FAERS Safety Report 9261553 (Version 1)
Quarter: 2013Q2

REPORT INFORMATION
  Report Type: Spontaneous
  Country: FR (occurrence: FR)
  Receive Date: 20130429
  Receipt Date: 20130429
  Transmission Date: 20140414
  Serious: Yes (Death, Hospitalization)
  Sender: FDA-Public Use
  Company Number: FR-PFIZER INC-2013127719

PATIENT
  Age: 77 Year
  Sex: Male
  Weight: 80 kg

DRUGS (4)
  1. CELEBREX [Suspect]
     Indication: OSTEOARTHRITIS
     Dosage: UNK
     Route: 048
     Dates: end: 20130402
  2. AUGMENTIN [Concomitant]
     Indication: BRONCHITIS
     Dosage: UNK
     Dates: start: 2013
  3. AUGMENTIN [Concomitant]
     Indication: DYSPNOEA
     Dosage: 2 G, DAILY
     Dates: start: 201304
  4. STRUCTUM [Concomitant]
     Indication: OSTEOARTHRITIS

REACTIONS (4)
  - Infection [Fatal]
  - Pneumonia [Fatal]
  - Respiratory distress [Fatal]
  - Multi-organ failure [Fatal]
